FAERS Safety Report 23849493 (Version 1)
Quarter: 2024Q2

REPORT INFORMATION
  Report Type: Spontaneous
  Country: US (occurrence: None)
  Receive Date: 20240512
  Receipt Date: 20240512
  Transmission Date: 20240716
  Serious: Yes (Hospitalization)
  Sender: FDA-Public Use
  Company Number: None

PATIENT
  Age: 84 Year
  Sex: Male
  Weight: 68.9 kg

DRUGS (1)
  1. PACLITAXEL [Suspect]
     Active Substance: PACLITAXEL
     Indication: Non-small cell lung cancer
     Dosage: FREQUENCY : WEEKLY;?
     Route: 042
     Dates: start: 20191224, end: 20200103

REACTIONS (2)
  - Cough [None]
  - Dyspnoea [None]

NARRATIVE: CASE EVENT DATE: 20200103
